FAERS Safety Report 22109296 (Version 1)
Quarter: 2023Q1

REPORT INFORMATION
  Report Type: Report from Study
  Country: IT (occurrence: IT)
  Receive Date: 20230317
  Receipt Date: 20230317
  Transmission Date: 20230418
  Serious: Yes (Death, Life-Threatening, Other)
  Sender: FDA-Public Use
  Company Number: IT-SA-2023SA083740

PATIENT
  Age: 68 Year

DRUGS (10)
  1. OXALIPLATIN [Suspect]
     Active Substance: OXALIPLATIN
     Indication: Pancreatic carcinoma metastatic
     Dosage: OVER 2-HOURS AS AN INTRAVENOUS INFUSION IN 250 ML OF DEXTROSE 5%, AT THE DOSE OF 70-80 MG/M2, Q4W
     Route: 042
  2. OXALIPLATIN [Suspect]
     Active Substance: OXALIPLATIN
     Indication: Ductal adenocarcinoma of pancreas
  3. IRINOTECAN [Suspect]
     Active Substance: IRINOTECAN
     Indication: Ductal adenocarcinoma of pancreas
     Dosage: 120-140-160 MG/M2 ADMINISTERED OVER 90 MINUTES AS AN INTRAVENOUS INFUSION IN 250 ML OF NACL 0.9%, DA
     Route: 042
  4. IRINOTECAN [Suspect]
     Active Substance: IRINOTECAN
     Indication: Pancreatic carcinoma metastatic
  5. FLUOROURACIL [Suspect]
     Active Substance: FLUOROURACIL
     Indication: Ductal adenocarcinoma of pancreas
     Dosage: 750-800-900 MG/M2/DIE,  OVER 12-HOUR (FROM 10:00 P.M TO 10:00 A.M.), DAYS 1-2, 8-9, 15-16 AND 22-23,
  6. FLUOROURACIL [Suspect]
     Active Substance: FLUOROURACIL
     Indication: Pancreatic carcinoma metastatic
  7. DEXTROSE [Concomitant]
     Active Substance: DEXTROSE
     Indication: Ductal adenocarcinoma of pancreas
     Dosage: 250 ML OF 5%
  8. DEXTROSE [Concomitant]
     Active Substance: DEXTROSE
     Indication: Pancreatic carcinoma metastatic
  9. SODIUM CHLORIDE [Concomitant]
     Active Substance: SODIUM CHLORIDE
     Indication: Ductal adenocarcinoma of pancreas
     Dosage: 250 ML, 0.9%
  10. SODIUM CHLORIDE [Concomitant]
     Active Substance: SODIUM CHLORIDE
     Indication: Pancreatic carcinoma metastatic

REACTIONS (10)
  - Diarrhoea [Fatal]
  - Toxicity to various agents [Fatal]
  - Mucosal inflammation [Unknown]
  - Thrombocytopenia [Unknown]
  - Hypoalbuminaemia [Unknown]
  - Anaemia [Unknown]
  - Hypokalaemia [Unknown]
  - Hypercreatininaemia [Unknown]
  - Neutropenia [Unknown]
  - Asthenia [Unknown]
